FAERS Safety Report 18162453 (Version 1)
Quarter: 2020Q3

REPORT INFORMATION
  Report Type: Spontaneous
  Country: FR (occurrence: FR)
  Receive Date: 20200818
  Receipt Date: 20200818
  Transmission Date: 20201103
  Serious: Yes (Hospitalization)
  Sender: FDA-Public Use
  Company Number: FR-ALLERGAN-2030688US

PATIENT
  Sex: Male
  Weight: 118 kg

DRUGS (14)
  1. CALCIDOSE [Concomitant]
  2. CORTANCYL [Concomitant]
     Active Substance: PREDNISONE
  3. DOLIPRANE [Concomitant]
     Active Substance: ACETAMINOPHEN
  4. ZOPICLONE [Concomitant]
     Active Substance: ZOPICLONE
  5. OMIX [Concomitant]
     Active Substance: TAMSULOSIN HYDROCHLORIDE
  6. LIRAGLUTIDE [Concomitant]
     Active Substance: LIRAGLUTIDE
  7. ZYMAD [Concomitant]
     Active Substance: CHOLECALCIFEROL
  8. ELIQUIS [Concomitant]
     Active Substance: APIXABAN
  9. AMYCOR ONYCHOSET [Concomitant]
  10. OMEPRAZOLE. [Suspect]
     Active Substance: OMEPRAZOLE
     Indication: GASTRIC ULCER HELICOBACTER
     Dosage: 20 MG, QD
     Route: 048
     Dates: start: 20200625, end: 20200703
  11. IRBESARTAN. [Concomitant]
     Active Substance: IRBESARTAN
  12. METFORMINE [Concomitant]
     Active Substance: METFORMIN HYDROCHLORIDE
  13. PYLERA [Suspect]
     Active Substance: BISMUTH SUBCITRATE POTASSIUM\METRONIDAZOLE\TETRACYCLINE HYDROCHLORIDE
     Indication: GASTRIC ULCER HELICOBACTER
     Dosage: 12 DF, QD
     Route: 048
     Dates: start: 20200625, end: 20200703
  14. PRIMPERAN [Concomitant]
     Active Substance: METOCLOPRAMIDE HYDROCHLORIDE

REACTIONS (8)
  - Muscular weakness [Recovered/Resolved]
  - Myalgia [Recovered/Resolved]
  - Visual acuity reduced [Recovered/Resolved]
  - Urinary incontinence [Recovering/Resolving]
  - Dysuria [Recovering/Resolving]
  - Headache [Recovered/Resolved]
  - Hallucination [Recovered/Resolved]
  - Somnolence [Recovered/Resolved]

NARRATIVE: CASE EVENT DATE: 202007
